FAERS Safety Report 4743528-7 (Version None)
Quarter: 2005Q3

REPORT INFORMATION
  Report Type: 
  Country: None (occurrence: None)
  Receive Date: 20050809
  Receipt Date: 20050727
  Transmission Date: 20060218
  Serious: Yes (Hospitalization)
  Sender: FDA-Public Use
  Company Number: 2005108385

PATIENT
  Age: 51 Year
  Sex: Male
  Weight: 120 kg

DRUGS (1)
  1. DOXAZOSIN (DOXAZOSIN) [Suspect]
     Indication: HYPERTENSION
     Dosage: 4 MG (4 MG, QD EVERY DAY), ORAL
     Route: 048
     Dates: start: 20031030, end: 20040101

REACTIONS (3)
  - BLOOD PRESSURE INCREASED [None]
  - BRADYPHRENIA [None]
  - CEREBRAL ISCHAEMIA [None]
